FAERS Safety Report 7261776-1 (Version None)
Quarter: 2011Q1

REPORT INFORMATION
  Report Type: 
  Country: None (occurrence: None)
  Receive Date: 20110130
  Receipt Date: 20101025
  Transmission Date: 20110831
  Serious: No
  Sender: FDA-Public Use
  Company Number: US-ABBOTT-10P-163-0681230-00

PATIENT
  Age: 51 Year
  Sex: Female

DRUGS (4)
  1. HUMIRA [Suspect]
     Indication: PSORIATIC ARTHROPATHY
     Dates: start: 20100927
  2. THYROID [Concomitant]
     Indication: PRODUCT USED FOR UNKNOWN INDICATION
  3. LOBIC [Concomitant]
     Indication: INFLAMMATION
  4. GAMMA GUARD INFUSION [Concomitant]
     Indication: PRODUCT USED FOR UNKNOWN INDICATION
     Dosage: ONCE MONTHLY

REACTIONS (3)
  - IMMUNOSUPPRESSION [None]
  - URINE COLOUR ABNORMAL [None]
  - FUNGAL INFECTION [None]
